FAERS Safety Report 10745915 (Version 1)
Quarter: 2015Q1

REPORT INFORMATION
  Report Type: Spontaneous
  Country: US (occurrence: US)
  Receive Date: 20150128
  Receipt Date: 20150128
  Transmission Date: 20150721
  Serious: No
  Sender: FDA-Public Use
  Company Number: US-GLAXOSMITHKLINE-US2014GSK029746

PATIENT
  Sex: Female

DRUGS (2)
  1. PROPAFENON TABLET TABLET [Suspect]
     Active Substance: PROPAFENONE
     Indication: HEART RATE IRREGULAR
     Dosage: 225 MG, UNK
  2. RYTHMOL SR [Suspect]
     Active Substance: PROPAFENONE HYDROCHLORIDE
     Indication: HEART RATE IRREGULAR
     Dosage: 225 MG, UNK
     Route: 048
     Dates: start: 20141118, end: 2014

REACTIONS (1)
  - Drug ineffective [Recovered/Resolved]
